FAERS Safety Report 4937380-4 (Version None)
Quarter: 2006Q1

REPORT INFORMATION
  Report Type: 
  Country: None (occurrence: None)
  Receive Date: 20060302
  Receipt Date: 20060209
  Transmission Date: 20060701
  Serious: Yes (Hospitalization)
  Sender: FDA-Public Use
  Company Number: FR200602002021

PATIENT
  Age: 73 Year
  Sex: Female

DRUGS (10)
  1. FORTEO [Suspect]
     Indication: OSTEOPOROSIS
     Dosage: 20 UG, DAILY (1/D), SUBCUTANEOUS
     Route: 058
     Dates: start: 20050926
  2. FORTEO PEN (FORTEO PEN) PEN, DISPOSABLE [Concomitant]
  3. ISOSORBIDE MONONITRATE [Concomitant]
  4. ATORVASTATIN CALCIUM [Concomitant]
  5. SINTROM [Concomitant]
  6. DISCOTRINE (GLYCERYL TRINITRATE) PATCH [Concomitant]
  7. FLECAINIDE ACETATE [Concomitant]
  8. CALPEROS (CALCIUM CARBONATE) [Concomitant]
  9. AMLODIPINE BESYLATE [Concomitant]
  10. ATACAND [Concomitant]

REACTIONS (3)
  - CARDIAC FIBRILLATION [None]
  - MALAISE [None]
  - NAUSEA [None]
